FAERS Safety Report 7601765-8 (Version None)
Quarter: 2011Q3

REPORT INFORMATION
  Report Type: 
  Country: None (occurrence: None)
  Receive Date: 20110711
  Receipt Date: 20101206
  Transmission Date: 20111222
  Serious: Yes (Death, Hospitalization, Other)
  Sender: FDA-Public Use
  Company Number: US-BAYER-200940302NA

PATIENT
  Age: 46 Year
  Sex: Male
  Weight: 75.737 kg

DRUGS (32)
  1. DOPAMINE HYDROCHLORIDE [Concomitant]
     Dosage: RENAL DOSE
     Route: 041
     Dates: start: 20021020, end: 20021026
  2. PLASMA [Concomitant]
     Dosage: 4 U, UNK
     Route: 042
     Dates: start: 20021009
  3. MULTIPLE VITAMIN [Concomitant]
     Dosage: 1 DAILY
     Route: 048
  4. ACE INHIBITOR NOS [Concomitant]
  5. FENTANYL [Concomitant]
     Dosage: UNK
     Route: 042
     Dates: start: 20021009
  6. BETAPACE [Concomitant]
     Dosage: 40 MG TWICE DAILY
     Route: 048
  7. ALDACTONE [Concomitant]
     Dosage: 50 MG, BID
     Route: 048
  8. CONTRAST MEDIA [Concomitant]
     Indication: CATHETERISATION CARDIAC
     Dosage: UNK
     Dates: start: 20020913
  9. PLATELETS [Concomitant]
     Dosage: 20 U, UNK
     Route: 042
     Dates: start: 20021009
  10. PROPOFOL [Concomitant]
     Dosage: UNK
     Route: 042
     Dates: start: 20021009
  11. AMICAR [Concomitant]
     Dosage: 10 G, UNK, AT 08:21
     Route: 042
  12. CELEXA [Concomitant]
     Dosage: 20 MG DAILY
     Route: 048
  13. VANCOMYCIN [Concomitant]
     Dosage: UNK
     Route: 042
     Dates: start: 20020514
  14. CEPHALEXIN [Concomitant]
     Indication: CELLULITIS
     Dosage: UNK
     Dates: start: 20020605
  15. TOBRAMYCIN [Concomitant]
     Dosage: UNK
     Route: 042
     Dates: start: 20021009
  16. NIPRIDE [Concomitant]
     Dosage: UNK
     Route: 042
     Dates: start: 20021009
  17. LASIX [Concomitant]
     Indication: ASCITES
     Dosage: 40 MG, DAILY
     Route: 048
  18. HEPARIN [Concomitant]
     Dosage: UNK
     Route: 042
     Dates: start: 20021009
  19. VANCOMYCIN [Concomitant]
     Dosage: 48 HOURS
     Route: 042
     Dates: start: 20021010, end: 20021012
  20. AMICAR [Concomitant]
     Dosage: 10 G, UNK, AT 1040
     Route: 042
  21. NITROGLYCERIN [Concomitant]
     Dosage: 0.5 MCG/KG/MIN
     Route: 041
     Dates: start: 20021009
  22. LIDOCAINE [Concomitant]
     Dosage: 1 MG/MIN
     Route: 041
     Dates: start: 20021009
  23. RED BLOOD CELLS [Concomitant]
     Dosage: 2 U, UNK
     Route: 042
     Dates: start: 20021016
  24. VERSED [Concomitant]
     Dosage: UNK
     Route: 042
     Dates: start: 20021009
  25. ALBUTEROL SULFATE AUTOHALER [Concomitant]
     Dosage: 2 PUFF(S), BID INHALANT
     Route: 055
  26. VANCOMYCIN [Concomitant]
     Dosage: UNK
     Route: 042
     Dates: start: 20021009
  27. TRASYLOL [Suspect]
     Indication: AORTIC VALVE REPLACEMENT
     Dosage: UNK
     Route: 042
     Dates: start: 20021001
  28. LACTULOSE [Concomitant]
     Dosage: 20 GRAMS THREE TIMES A DAY
     Route: 048
  29. PROTAMINE SULFATE [Concomitant]
     Dosage: UNK
     Route: 042
     Dates: start: 20021009
  30. LEVAQUIN [Concomitant]
     Indication: CELLULITIS
     Dosage: UNK
     Dates: start: 20020605
  31. TOBRAMYCIN [Concomitant]
     Dosage: 48 HOURS
     Route: 042
     Dates: start: 20021010, end: 20021012
  32. RED BLOOD CELLS [Concomitant]
     Dosage: 2 U, UNK
     Route: 042
     Dates: start: 20021009

REACTIONS (19)
  - ANXIETY [None]
  - ANHEDONIA [None]
  - HEPATORENAL SYNDROME [None]
  - MULTI-ORGAN FAILURE [None]
  - INJURY [None]
  - RENAL TUBULAR NECROSIS [None]
  - HAEMODIALYSIS [None]
  - RENAL FAILURE [None]
  - FEAR [None]
  - HYPOTENSION [None]
  - DEATH [None]
  - RENAL IMPAIRMENT [None]
  - RENAL INJURY [None]
  - ATRIOVENTRICULAR BLOCK COMPLETE [None]
  - POSTOPERATIVE RENAL FAILURE [None]
  - EMOTIONAL DISTRESS [None]
  - UNEVALUABLE EVENT [None]
  - PAIN [None]
  - STRESS [None]
